APPROVED DRUG PRODUCT: DACARBAZINE
Active Ingredient: DACARBAZINE
Strength: 200MG/VIAL
Dosage Form/Route: INJECTABLE;INJECTION
Application: A075371 | Product #002 | TE Code: AP
Applicant: FRESENIUS KABI USA LLC
Approved: Aug 27, 1999 | RLD: No | RS: Yes | Type: RX